FAERS Safety Report 8348448-7 (Version None)
Quarter: 2012Q2

REPORT INFORMATION
  Report Type: 
  Country: None (occurrence: None)
  Receive Date: 20120509
  Receipt Date: 20120426
  Transmission Date: 20120825
  Serious: Yes (Other)
  Sender: FDA-Public Use
  Company Number: CHPA2012US010012

PATIENT
  Age: 54 Year
  Sex: Male

DRUGS (1)
  1. EXCEDRIN PM TABLETS [Suspect]
     Indication: PAIN
     Dosage: 1/2 TO 2 PILLS
     Route: 048
     Dates: start: 20020101

REACTIONS (3)
  - WRONG TECHNIQUE IN DRUG USAGE PROCESS [None]
  - UNDERDOSE [None]
  - HYPERTENSION [None]
